FAERS Safety Report 8245454-8 (Version None)
Quarter: 2012Q1

REPORT INFORMATION
  Report Type: 
  Country: None (occurrence: None)
  Receive Date: 20120329
  Receipt Date: 20120323
  Transmission Date: 20120608
  Serious: Yes (Other)
  Sender: FDA-Public Use
  Company Number: JP-MERCK-1203USA00216

PATIENT
  Age: 73 Year
  Sex: Male

DRUGS (7)
  1. FEBUXOSTAT [Concomitant]
     Route: 065
  2. PEPCID RPD [Suspect]
     Route: 048
  3. ONON [Concomitant]
     Route: 048
  4. ALLEGRA [Concomitant]
     Route: 065
  5. MUCOSTA [Concomitant]
     Route: 065
  6. CANDESARTAN CILEXETIL [Concomitant]
     Route: 065
  7. PEPCID RPD [Suspect]
     Route: 048

REACTIONS (1)
  - HYPOGLYCAEMIA [None]
